FAERS Safety Report 7594455 (Version 4)
Quarter: 2013Q4

REPORT INFORMATION
  Report Type: Spontaneous
  Country: US (occurrence: US)
  Receive Date: 20100920
  Receipt Date: 20131218
  Transmission Date: 20140711
  Serious: Yes (Hospitalization)
  Sender: FDA-Public Use
  Company Number: US-BAYER-201033781NA

PATIENT
  Age: 39 Year
  Sex: Female
  Weight: 63.49 kg

DRUGS (8)
  1. YAZ [Suspect]
     Indication: CONTRACEPTION
     Dosage: UNK
     Dates: start: 200308
  2. YASMIN [Suspect]
     Indication: CONTRACEPTION
     Dosage: UNK
     Dates: start: 200308, end: 20090903
  3. NEXIUM [Concomitant]
  4. PREVACID [Concomitant]
  5. FAMOTIDINE [Concomitant]
     Dosage: 20 MG, UNK
     Route: 048
  6. HYOSCYAMINE [Concomitant]
     Dosage: 0.375 MG, UNK
     Route: 048
  7. LEVBID [Concomitant]
  8. PEPCID [Concomitant]

REACTIONS (3)
  - Gallbladder disorder [Unknown]
  - Pain [Unknown]
  - Cholecystitis [None]
